FAERS Safety Report 18150207 (Version 1)
Quarter: 2020Q3

REPORT INFORMATION
  Report Type: Other
  Country: CA (occurrence: CA)
  Receive Date: 20200814
  Receipt Date: 20200814
  Transmission Date: 20201103
  Serious: Yes (Other)
  Sender: FDA-Public Use
  Company Number: CA-APOTEX-2020AP015785

PATIENT
  Age: 50 Year
  Sex: Female

DRUGS (2)
  1. SALBUTAMOL [Suspect]
     Active Substance: ALBUTEROL
     Indication: PRODUCT USED FOR UNKNOWN INDICATION
     Dosage: 100 MICROGRAM
  2. EPIPEN [Concomitant]
     Active Substance: EPINEPHRINE
     Indication: MULTIPLE ALLERGIES
     Dosage: UNK
     Route: 065

REACTIONS (3)
  - Back disorder [Unknown]
  - Syringomyelia [Unknown]
  - Facet joint syndrome [Unknown]
